FAERS Safety Report 10655531 (Version 1)
Quarter: 2014Q4

REPORT INFORMATION
  Report Type: Spontaneous
  Country: US (occurrence: US)
  Receive Date: 20141216
  Receipt Date: 20141216
  Transmission Date: 20150529
  Serious: Yes (Hospitalization, Other)
  Sender: FDA-Public Use
  Company Number: US-BAYER-2014-182440

PATIENT
  Age: 29 Year
  Sex: Female

DRUGS (2)
  1. BETASERON [Suspect]
     Active Substance: INTERFERON BETA-1B
     Indication: MULTIPLE SCLEROSIS
     Dosage: 0.3 MG, QOD
     Route: 058
     Dates: start: 20110820
  2. OXYBUTYNIN [Suspect]
     Active Substance: OXYBUTYNIN
     Dosage: UNK

REACTIONS (4)
  - Multiple sclerosis relapse [None]
  - Pain [None]
  - Urinary tract infection [None]
  - Constipation [None]

NARRATIVE: CASE EVENT DATE: 2014
